FAERS Safety Report 10438621 (Version 3)
Quarter: 2018Q2

REPORT INFORMATION
  Report Type: Spontaneous
  Country: BR (occurrence: BR)
  Receive Date: 20140908
  Receipt Date: 20180530
  Transmission Date: 20180711
  Serious: Yes (Death, Hospitalization, Other)
  Sender: FDA-Public Use
  Company Number: PHHY2014BR115100

PATIENT
  Sex: Female
  Weight: 62.5 kg

DRUGS (6)
  1. EXJADE [Suspect]
     Active Substance: DEFERASIROX
     Indication: SICKLE CELL ANAEMIA
     Dosage: 20 MG/KG, QD (1250 MG, DAILY) (2 TABLETS OF 500 MG AND 1 OF 250 MG)
     Route: 048
     Dates: start: 20140109, end: 20140313
  2. ACIDO FOLICO//FOLIC ACID [Concomitant]
     Active Substance: FOLIC ACID
     Indication: PRODUCT USED FOR UNKNOWN INDICATION
     Dosage: UNK
     Route: 065
  3. VITAMIN D3 [Concomitant]
     Active Substance: CHOLECALCIFEROL
     Indication: PRODUCT USED FOR UNKNOWN INDICATION
     Dosage: UNK
     Route: 065
  4. ENALAPRIL [Concomitant]
     Active Substance: ENALAPRIL
     Indication: PRODUCT USED FOR UNKNOWN INDICATION
     Dosage: UNK
     Route: 065
  5. ALENDRONATE [Concomitant]
     Active Substance: ALENDRONATE SODIUM
     Indication: PRODUCT USED FOR UNKNOWN INDICATION
     Dosage: UNK
     Route: 065
  6. CALCIUM CARBONATE. [Concomitant]
     Active Substance: CALCIUM CARBONATE
     Indication: PRODUCT USED FOR UNKNOWN INDICATION
     Dosage: UNK
     Route: 065

REACTIONS (24)
  - Encephalopathy [Fatal]
  - Mouth haemorrhage [Fatal]
  - Hepatic failure [Fatal]
  - Haemorrhage [Unknown]
  - Fatigue [Fatal]
  - Shock [Fatal]
  - Epistaxis [Fatal]
  - Alanine aminotransferase increased [Fatal]
  - Cardiac arrest [Fatal]
  - Skin ulcer [Unknown]
  - Acute kidney injury [Fatal]
  - Drug ineffective [Unknown]
  - Multiple organ dysfunction syndrome [Fatal]
  - Nausea [Fatal]
  - Hepatitis fulminant [Fatal]
  - Prothrombin time prolonged [Fatal]
  - Jaundice [Fatal]
  - Distributive shock [Fatal]
  - Septic shock [Fatal]
  - Pyrexia [Unknown]
  - Mental status changes [Fatal]
  - Blood bilirubin increased [Fatal]
  - Aspartate aminotransferase increased [Fatal]
  - Drug-induced liver injury [Fatal]
